FAERS Safety Report 9730496 (Version 1)
Quarter: 2013Q4

REPORT INFORMATION
  Report Type: Spontaneous
  Country: US (occurrence: US)
  Receive Date: 20131202
  Receipt Date: 20131202
  Transmission Date: 20140711
  Serious: Yes (Hospitalization, Other)
  Sender: FDA-Public Use
  Company Number: US-TEVA-447400USA

PATIENT
  Sex: Female
  Weight: 89.89 kg

DRUGS (1)
  1. PARAGARD 380A [Suspect]
     Indication: CONTRACEPTION
     Route: 015

REACTIONS (3)
  - Abdominal adhesions [Recovered/Resolved]
  - Ovarian cyst [Recovered/Resolved]
  - Adnexa uteri pain [Recovered/Resolved]
